FAERS Safety Report 6750068-2 (Version None)
Quarter: 2010Q2

REPORT INFORMATION
  Report Type: 
  Country: None (occurrence: None)
  Receive Date: 20100601
  Receipt Date: 20100519
  Transmission Date: 20101027
  Serious: Yes (Hospitalization)
  Sender: FDA-Public Use
  Company Number: JP-PFIZER INC-2010032603

PATIENT
  Age: 66 Year
  Sex: Male
  Weight: 65 kg

DRUGS (4)
  1. SUNITINIB MALATE [Suspect]
     Indication: GASTROINTESTINAL STROMAL TUMOUR
     Dosage: 50 MG, 1X/DAY
     Route: 048
     Dates: start: 20090409
  2. AZUNOL [Concomitant]
     Dosage: UNK
     Route: 062
     Dates: start: 20090423, end: 20090520
  3. LAC B [Concomitant]
     Dosage: UNK
     Route: 048
     Dates: start: 20090430, end: 20090513
  4. BISMUTH SUBNITRATE [Concomitant]
     Dosage: UNK
     Route: 048
     Dates: start: 20090430, end: 20090513

REACTIONS (1)
  - GASTROINTESTINAL OBSTRUCTION [None]
